FAERS Safety Report 11276048 (Version 1)
Quarter: 2015Q3

REPORT INFORMATION
  Report Type: Spontaneous
  Country: IT (occurrence: IT)
  Receive Date: 20150716
  Receipt Date: 20150716
  Transmission Date: 20151125
  Serious: Yes (Hospitalization, Other)
  Sender: FDA-Public Use
  Company Number: IT-CELGENE-ITA-2015072077

PATIENT
  Age: 61 Year
  Sex: Male

DRUGS (3)
  1. AZACITIDINE. [Suspect]
     Active Substance: AZACITIDINE
     Indication: MYELODYSPLASTIC SYNDROME
     Dosage: 75 MILLIGRAM/SQ. METER
     Route: 065
  2. RED BLOOD CELLS [Concomitant]
     Active Substance: HUMAN RED BLOOD CELL
     Indication: PRODUCT USED FOR UNKNOWN INDICATION
     Dosage: }2 TRANSFUSION PER MONTH
     Route: 041
  3. EPO [Concomitant]
     Active Substance: ERYTHROPOIETIN
     Indication: PRODUCT USED FOR UNKNOWN INDICATION
     Dosage: }2 TRANSFUSION PER MONTH
     Route: 041

REACTIONS (5)
  - Chronic graft versus host disease in skin [Unknown]
  - Staphylococcal sepsis [Unknown]
  - Neutropenia [Unknown]
  - Pneumonia [Unknown]
  - Scleroderma [Unknown]

NARRATIVE: CASE EVENT DATE: 2011
